FAERS Safety Report 7111026-1 (Version None)
Quarter: 2010Q4

REPORT INFORMATION
  Report Type: 
  Country: None (occurrence: None)
  Receive Date: 20101118
  Receipt Date: 20101110
  Transmission Date: 20110411
  Serious: Yes (Hospitalization, Other)
  Sender: FDA-Public Use
  Company Number: US-B.I. PHARMACEUTICALS,INC./RIDGEFIELD-2010-BP-12628BP

PATIENT
  Sex: Female

DRUGS (1)
  1. COMBIVENT [Suspect]
     Indication: CHRONIC OBSTRUCTIVE PULMONARY DISEASE
     Dosage: 18MCG/103MCG; 2 PUFFS Q 2-3 HOURS PRN
     Route: 055
     Dates: start: 20050101

REACTIONS (3)
  - CERVIX CARCINOMA [None]
  - DYSPNOEA [None]
  - JOINT INJURY [None]
